FAERS Safety Report 8327725-X (Version None)
Quarter: 2012Q2

REPORT INFORMATION
  Report Type: 
  Country: None (occurrence: None)
  Receive Date: 20120502
  Receipt Date: 20120424
  Transmission Date: 20120825
  Serious: Yes (Hospitalization)
  Sender: FDA-Public Use
  Company Number: US-BAYER-2011-118973

PATIENT
  Age: 30 Year
  Sex: Female
  Weight: 57.596 kg

DRUGS (2)
  1. NSAID'S [Concomitant]
     Dosage: UNK
     Dates: start: 20091001
  2. YASMIN [Suspect]
     Dosage: UNK
     Route: 048
     Dates: start: 20081101, end: 20090101

REACTIONS (10)
  - BILE DUCT STONE [None]
  - BILIRUBIN CONJUGATED INCREASED [None]
  - CHOLECYSTITIS CHRONIC [None]
  - MULTIPLE INJURIES [None]
  - ASPARTATE AMINOTRANSFERASE INCREASED [None]
  - GALLBLADDER DISORDER [None]
  - ALANINE AMINOTRANSFERASE INCREASED [None]
  - BLOOD BILIRUBIN INCREASED [None]
  - PAIN [None]
  - CHOLELITHIASIS [None]
